FAERS Safety Report 9662366 (Version 2)
Quarter: 2013Q4

REPORT INFORMATION
  Report Type: Spontaneous
  Country: US (occurrence: US)
  Receive Date: 20131031
  Receipt Date: 20131031
  Transmission Date: 20140711
  Serious: No
  Sender: FDA-Public Use
  Company Number: US-PURDUE-USA-2010-0056416

PATIENT
  Age: 47 Year
  Sex: Male
  Weight: 89.8 kg

DRUGS (2)
  1. OXYCONTIN (NDA 22-272) [Suspect]
     Indication: PAIN MANAGEMENT
     Dosage: 20 MG, BID
     Dates: start: 20101130
  2. HYDROCODONE [Concomitant]
     Indication: PRODUCT USED FOR UNKNOWN INDICATION
     Dosage: 10 MG, BID PRN

REACTIONS (12)
  - Drug withdrawal syndrome [Recovered/Resolved]
  - Swollen tongue [Unknown]
  - Pain [Recovered/Resolved]
  - Abdominal distension [Unknown]
  - Nausea [Recovered/Resolved]
  - Inadequate analgesia [Recovered/Resolved]
  - Headache [Recovered/Resolved]
  - Constipation [Unknown]
  - Abdominal pain upper [Recovered/Resolved]
  - Malaise [Recovered/Resolved]
  - Hyperhidrosis [Recovered/Resolved]
  - Dysgeusia [Recovered/Resolved]
